FAERS Safety Report 20162285 (Version 1)
Quarter: 2021Q4

REPORT INFORMATION
  Report Type: Spontaneous
  Country: US (occurrence: US)
  Receive Date: 20211208
  Receipt Date: 20211208
  Transmission Date: 20220303
  Serious: No
  Sender: FDA-Public Use
  Company Number: US-Millicent Holdings Ltd.-MILL20210938

PATIENT
  Age: 61 Year
  Sex: Female

DRUGS (2)
  1. INTRAROSA [Suspect]
     Active Substance: PRASTERONE
     Indication: Atrophic vulvovaginitis
     Dosage: UNKNOWN
     Route: 067
     Dates: start: 20211025
  2. INTRAROSA [Suspect]
     Active Substance: PRASTERONE
     Dosage: UNKNOWN
     Route: 067
     Dates: start: 20211123

REACTIONS (5)
  - Visual impairment [Not Recovered/Not Resolved]
  - Vitreous floaters [Not Recovered/Not Resolved]
  - Application site discharge [Not Recovered/Not Resolved]
  - Off label use [Unknown]
  - Off label use [Unknown]

NARRATIVE: CASE EVENT DATE: 20211025
